FAERS Safety Report 12728049 (Version 3)
Quarter: 2016Q4

REPORT INFORMATION
  Report Type: Spontaneous
  Country: US (occurrence: US)
  Receive Date: 20160909
  Receipt Date: 20161102
  Transmission Date: 20170207
  Serious: Yes (Hospitalization, Other)
  Sender: FDA-Public Use
  Company Number: US-PFIZER INC-2016411773

PATIENT
  Age: 61 Year
  Sex: Female
  Weight: 95.24 kg

DRUGS (22)
  1. CRESTOR [Concomitant]
     Active Substance: ROSUVASTATIN CALCIUM
     Indication: BLOOD CHOLESTEROL ABNORMAL
     Dosage: 20MG TABLET, ONCE DAILY BEFORE BED/AT NIGHT)
  2. OMEPRAZOLE. [Concomitant]
     Active Substance: OMEPRAZOLE
     Indication: GASTROOESOPHAGEAL REFLUX DISEASE
     Dosage: 20MG CAPSULE, ONE CAPSULE TWICE DAILY
  3. ASPIRIN. [Concomitant]
     Active Substance: ASPIRIN
     Indication: BLOOD DISORDER
     Dosage: 81 MG, 1X/DAY
  4. PROVENTIL [Concomitant]
     Active Substance: ALBUTEROL
     Dosage: UNK
     Route: 055
  5. GABAPENTIN. [Concomitant]
     Active Substance: GABAPENTIN
     Indication: DIABETIC NEUROPATHY
     Dosage: 300MG CAPSULE, 1 CAPSULE AT BEDTIME
  6. METOPROLOL. [Concomitant]
     Active Substance: METOPROLOL
     Indication: HEART RATE ABNORMAL
     Dosage: 25MG TABLET, 0.5 TABLET TWICE A DAY
  7. GABAPENTIN. [Concomitant]
     Active Substance: GABAPENTIN
     Indication: NEURALGIA
  8. JANUVIA [Concomitant]
     Active Substance: SITAGLIPTIN PHOSPHATE
     Indication: BLOOD GLUCOSE ABNORMAL
     Dosage: 100MG TABLET, ONCE IN THE MORNING
  9. STOOL SOFTENER (DOCUSATE CALCIUM) [Concomitant]
     Active Substance: DOCUSATE CALCIUM
     Indication: CONSTIPATION
     Dosage: 100 MG, 2X/DAY
  10. BABY ASPIRIN [Concomitant]
     Active Substance: ASPIRIN
     Indication: COAGULOPATHY
     Dosage: UNK
  11. LANTUS [Concomitant]
     Active Substance: INSULIN GLARGINE
     Indication: DIABETES MELLITUS
     Dosage: 45 UNITS TWICE A DAY
     Route: 058
  12. BONIVA [Concomitant]
     Active Substance: IBANDRONATE SODIUM
     Indication: PROPHYLAXIS
     Dosage: ONCE A MONTH
  13. ROPINIROLE. [Concomitant]
     Active Substance: ROPINIROLE
     Indication: RESTLESS LEGS SYNDROME
     Dosage: 0.5MG TABLET, 2 TABLETS BEFORE BED
     Dates: start: 201605
  14. OXYCODONE [Concomitant]
     Active Substance: OXYCODONE
     Indication: PAIN
     Dosage: 10 MG, AS NEEDED
  15. IBRANCE [Suspect]
     Active Substance: PALBOCICLIB
     Indication: BREAST CANCER STAGE IV
     Dosage: 125 MG, CYCLIC(ONCE A DAY FOR 21 DAYS THEN OFF FOR 7 DAYS)
     Route: 048
     Dates: start: 20160113
  16. FEMARA [Concomitant]
     Active Substance: LETROZOLE
     Indication: OESTROGEN THERAPY
     Dosage: 2.5 MG, 1X/DAY (EVERY MORNING)
     Route: 048
     Dates: start: 201601
  17. CRESTOR [Concomitant]
     Active Substance: ROSUVASTATIN CALCIUM
     Indication: BLOOD CHOLESTEROL INCREASED
  18. FISH OIL [Concomitant]
     Active Substance: FISH OIL
     Indication: NUTRITIONAL SUPPLEMENTATION
     Dosage: 360 MG, 3X/DAY
  19. PRILOSEC [Concomitant]
     Active Substance: OMEPRAZOLE MAGNESIUM
     Indication: GASTROOESOPHAGEAL REFLUX DISEASE
     Dosage: UNK
  20. TRAZODONE [Concomitant]
     Active Substance: TRAZODONE HYDROCHLORIDE
     Indication: SLEEP DISORDER
     Dosage: 100MG TABLET, ONCE BEFORE BEDTIME
  21. JANUVIA [Concomitant]
     Active Substance: SITAGLIPTIN PHOSPHATE
     Indication: GLYCOSYLATED HAEMOGLOBIN
  22. CALCIUM D3 [Concomitant]
     Active Substance: CALCIUM\CHOLECALCIFEROL
     Indication: MINERAL SUPPLEMENTATION
     Dosage: 100 MG, 3X/DAY

REACTIONS (12)
  - Pleural effusion [Not Recovered/Not Resolved]
  - Nausea [Unknown]
  - Blister [Unknown]
  - Asthenia [Unknown]
  - Condition aggravated [Unknown]
  - Cellulitis [Unknown]
  - Dyspnoea [Unknown]
  - Urinary tract infection [Unknown]
  - Vomiting [Unknown]
  - Dyspnoea [Unknown]
  - Peripheral swelling [Unknown]
  - Infection [Unknown]

NARRATIVE: CASE EVENT DATE: 201608
